FAERS Safety Report 16150375 (Version 2)
Quarter: 2019Q4

REPORT INFORMATION
  Report Type: Spontaneous
  Country: US (occurrence: US)
  Receive Date: 20190403
  Receipt Date: 20191203
  Transmission Date: 20200122
  Serious: Yes (Other)
  Sender: FDA-Public Use
  Company Number: US-APOTEX-2019AP010691

PATIENT
  Sex: Female

DRUGS (2)
  1. FLUTICASONE. [Suspect]
     Active Substance: FLUTICASONE
     Indication: PRODUCT USED FOR UNKNOWN INDICATION
     Dosage: UNK, BID
     Route: 045
     Dates: start: 20190318
  2. FLUTICASONE. [Suspect]
     Active Substance: FLUTICASONE
     Dosage: UNK, QD
     Route: 045
     Dates: start: 20190319

REACTIONS (1)
  - Loss of control of legs [Recovered/Resolved]
